FAERS Safety Report 7523206-1 (Version None)
Quarter: 2011Q2

REPORT INFORMATION
  Report Type: 
  Country: None (occurrence: None)
  Receive Date: 20110603
  Receipt Date: 20110519
  Transmission Date: 20111010
  Serious: Yes (Death, Other)
  Sender: FDA-Public Use
  Company Number: HK-WATSON-2011-07679

PATIENT
  Age: 79 Year
  Sex: Female

DRUGS (2)
  1. DILTIAZEM HYDROCHLORIDE [Suspect]
     Indication: HYPERTENSION
     Dosage: 180 MG, DAILY
  2. SIMVASTATIN [Suspect]
     Indication: HYPERCHOLESTEROLAEMIA
     Dosage: MG, DAILY

REACTIONS (4)
  - CARDIAC FAILURE [None]
  - MYOPATHY [None]
  - INHIBITORY DRUG INTERACTION [None]
  - RENAL FAILURE ACUTE [None]
